FAERS Safety Report 15703722 (Version 1)
Quarter: 2018Q4

REPORT INFORMATION
  Report Type: Spontaneous
  Country: US (occurrence: US)
  Receive Date: 20181210
  Receipt Date: 20181210
  Transmission Date: 20190205
  Serious: No
  Sender: FDA-Public Use
  Company Number: US-GLAXOSMITHKLINE-US2018216705

PATIENT
  Age: 31 Year
  Sex: Male

DRUGS (5)
  1. LAMICTAL [Suspect]
     Active Substance: LAMOTRIGINE
     Dosage: 50 MG, UNK
     Dates: start: 20181117
  2. TEGRETOL [Concomitant]
     Active Substance: CARBAMAZEPINE
  3. ABILIFY [Concomitant]
     Active Substance: ARIPIPRAZOLE
  4. BUSPAR [Concomitant]
     Active Substance: BUSPIRONE HYDROCHLORIDE
  5. LAMICTAL [Suspect]
     Active Substance: LAMOTRIGINE
     Indication: BIPOLAR DISORDER
     Dosage: 75 MG, UNK
     Dates: start: 20181110, end: 20181116

REACTIONS (4)
  - Anxiety [Unknown]
  - Depression [Unknown]
  - Negative thoughts [Unknown]
  - Anger [Unknown]

NARRATIVE: CASE EVENT DATE: 20181110
